FAERS Safety Report 23345730 (Version 1)
Quarter: 2023Q4

REPORT INFORMATION
  Report Type: Spontaneous
  Country: US (occurrence: US)
  Receive Date: 20231228
  Receipt Date: 20231228
  Transmission Date: 20240109
  Serious: No
  Sender: FDA-Public Use
  Company Number: US-HORIZON THERAPEUTICS-HZN-2023-002510

PATIENT

DRUGS (1)
  1. ACTIMMUNE [Suspect]
     Active Substance: INTERFERON GAMMA-1B
     Indication: Product used for unknown indication
     Dosage: UNKNOWN DOSE (INJECTION)
     Route: 065

REACTIONS (1)
  - Pharyngeal swelling [Unknown]
